FAERS Safety Report 14105894 (Version 1)
Quarter: 2017Q4

REPORT INFORMATION
  Report Type: Spontaneous
  Country: US (occurrence: US)
  Receive Date: 20171019
  Receipt Date: 20171019
  Transmission Date: 20180321
  Serious: Yes (Other)
  Sender: FDA-Public Use
  Company Number: US-AMGEN-USASP2017155140

PATIENT
  Age: 60 Year
  Sex: Female

DRUGS (7)
  1. VITAMIN C [Concomitant]
     Active Substance: ASCORBIC ACID
  2. MAGNESIUM [Concomitant]
     Active Substance: MAGNESIUM
  3. PROLIA [Suspect]
     Active Substance: DENOSUMAB
     Indication: OSTEOPENIA
     Dosage: 60 MG/ML, UNK
     Route: 065
     Dates: start: 201609
  4. VITAMIN D [Concomitant]
     Active Substance: CHOLECALCIFEROL
     Dosage: UNK
  5. MULTIVITAMIN [Concomitant]
     Active Substance: VITAMINS
     Dosage: UNK
  6. XANAX [Concomitant]
     Active Substance: ALPRAZOLAM
     Dosage: 30 PILLS EVERY 9 TO 10 MONTHS
  7. INDERAL [Concomitant]
     Active Substance: PROPRANOLOL HYDROCHLORIDE
     Indication: HYPERTENSION
     Dosage: 2.5 MG, UNK

REACTIONS (5)
  - Gait inability [Unknown]
  - Pain in extremity [Unknown]
  - Hip fracture [Recovered/Resolved]
  - Off label use [Unknown]
  - Bone pain [Unknown]

NARRATIVE: CASE EVENT DATE: 2016
